FAERS Safety Report 21674316 (Version 4)
Quarter: 2023Q2

REPORT INFORMATION
  Report Type: Report from Study
  Country: NL (occurrence: None)
  Receive Date: 20221202
  Receipt Date: 20230421
  Transmission Date: 20230722
  Serious: Yes (Hospitalization)
  Sender: FDA-Public Use
  Company Number: NL-ROCHE-3161561

PATIENT
  Age: 80 Year
  Sex: Male
  Weight: 103.4 kg

DRUGS (5)
  1. PRALSETINIB [Suspect]
     Active Substance: PRALSETINIB
     Indication: Non-small cell lung cancer
     Dosage: ON 01/JUN/2022 400MG?DATE OF LAST DOSE PRIOR TO AE AND SAE ON 10/AUG/2022 300MG
     Route: 048
     Dates: start: 20220601
  2. LEVOTHYROXINE [Concomitant]
     Active Substance: LEVOTHYROXINE
     Dates: start: 20220622
  3. RIVAROXABAN [Concomitant]
     Active Substance: RIVAROXABAN
     Dosage: 1GT
     Dates: start: 20220630
  4. OMEPRAZOLE [Concomitant]
     Active Substance: OMEPRAZOLE
     Dates: start: 20220622
  5. TRAMADOL [Concomitant]
     Active Substance: TRAMADOL

REACTIONS (2)
  - Malaise [Recovered/Resolved]
  - Pneumonia [Recovered/Resolved with Sequelae]

NARRATIVE: CASE EVENT DATE: 20220807
